FAERS Safety Report 20602774 (Version 3)
Quarter: 2022Q2

REPORT INFORMATION
  Report Type: Spontaneous
  Country: CA (occurrence: CA)
  Receive Date: 20220316
  Receipt Date: 20220602
  Transmission Date: 20220721
  Serious: Yes (Other)
  Sender: FDA-Public Use
  Company Number: CA-PFIZER INC-202200383041

PATIENT
  Age: 68 Year
  Sex: Male

DRUGS (2)
  1. RUXIENCE [Suspect]
     Active Substance: RITUXIMAB-PVVR
     Indication: Rheumatoid arthritis
     Dosage: 1000 MG, DAY1,DAY15
     Route: 042
     Dates: start: 20200303
  2. RUXIENCE [Suspect]
     Active Substance: RITUXIMAB-PVVR
     Dosage: 1000 MG, DAY1,DAY15
     Route: 042
     Dates: start: 20220303

REACTIONS (3)
  - C-reactive protein increased [Recovered/Resolved]
  - Neoplasm malignant [Unknown]
  - Red blood cell sedimentation rate increased [Recovered/Resolved]
